FAERS Safety Report 12312299 (Version 1)
Quarter: 2016Q2

REPORT INFORMATION
  Report Type: Spontaneous
  Country: CA (occurrence: CA)
  Receive Date: 20160428
  Receipt Date: 20160428
  Transmission Date: 20160815
  Serious: Yes (Death)
  Sender: FDA-Public Use
  Company Number: CA-ROCHE-1747469

PATIENT
  Age: 75 Year
  Sex: Male

DRUGS (7)
  1. RITUXAN [Suspect]
     Active Substance: RITUXIMAB
     Indication: CHRONIC LYMPHOCYTIC LEUKAEMIA
     Route: 042
  2. STATEX (CANADA) [Concomitant]
     Active Substance: MORPHINE SULFATE
     Route: 065
  3. IDELALISIB [Suspect]
     Active Substance: IDELALISIB
     Indication: CHRONIC LYMPHOCYTIC LEUKAEMIA
     Dosage: THERAPY DURATION: 9.0 DAY(S)
     Route: 048
  4. TAMSULOSIN [Concomitant]
     Active Substance: TAMSULOSIN
     Route: 065
  5. SIMVASTATIN. [Concomitant]
     Active Substance: SIMVASTATIN
     Route: 065
  6. METOPROLOL. [Concomitant]
     Active Substance: METOPROLOL
  7. LORAZEPAM. [Concomitant]
     Active Substance: LORAZEPAM
     Route: 065

REACTIONS (7)
  - Haemoglobin decreased [Fatal]
  - Nasopharyngitis [Fatal]
  - Lymphocyte count decreased [Fatal]
  - Drug ineffective [Fatal]
  - Platelet count decreased [Fatal]
  - Chills [Fatal]
  - Disease progression [Fatal]
